FAERS Safety Report 19374974 (Version 1)
Quarter: 2021Q2

REPORT INFORMATION
  Report Type: Spontaneous
  Country: US (occurrence: US)
  Receive Date: 20210604
  Receipt Date: 20210604
  Transmission Date: 20210717
  Serious: No
  Sender: FDA-Public Use
  Company Number: US-P+L DEVELOPMENTS OF NEWYORK CORPORATION-2112349

PATIENT
  Sex: Female

DRUGS (1)
  1. M?ZOLE 3 COMBINATION PACK [Suspect]
     Active Substance: MICONAZOLE NITRATE
     Indication: VULVOVAGINAL CANDIDIASIS
     Route: 067

REACTIONS (2)
  - Drug ineffective [Unknown]
  - Product quality issue [Unknown]
